FAERS Safety Report 9331068 (Version 1)
Quarter: 2013Q2

REPORT INFORMATION
  Report Type: Spontaneous
  Country: CO (occurrence: CO)
  Receive Date: 20130605
  Receipt Date: 20130605
  Transmission Date: 20140414
  Serious: Yes (Hospitalization)
  Sender: FDA-Public Use
  Company Number: CO-BRISTOL-MYERS SQUIBB COMPANY-18946459

PATIENT
  Age: 63 Year
  Sex: Male

DRUGS (1)
  1. IPILIMUMAB [Suspect]
     Indication: METASTATIC MALIGNANT MELANOMA
     Dosage: LAST CYCLE: 06-MAY-2013.?CYCLES ADMINISTERED: 1 CYCLE
     Dates: start: 20130506

REACTIONS (1)
  - Groin abscess [Unknown]
